FAERS Safety Report 7245629-0 (Version None)
Quarter: 2011Q1

REPORT INFORMATION
  Report Type: 
  Country: None (occurrence: None)
  Receive Date: 20110126
  Receipt Date: 20110117
  Transmission Date: 20110831
  Serious: Yes (Other)
  Sender: FDA-Public Use
  Company Number: US-ASTRAZENECA-2010SE17202

PATIENT
  Age: 61 Year
  Sex: Female

DRUGS (2)
  1. TAMOXIFEN [Suspect]
     Route: 048
  2. ARIMIDEX [Suspect]
     Route: 048

REACTIONS (7)
  - NECK MASS [None]
  - LIMB DISCOMFORT [None]
  - THROMBOSIS [None]
  - CEREBROVASCULAR ACCIDENT [None]
  - ARTHRALGIA [None]
  - GASTRIC NEOPLASM [None]
  - VOMITING [None]
